FAERS Safety Report 10600939 (Version 1)
Quarter: 2014Q4

REPORT INFORMATION
  Report Type: Spontaneous
  Country: US (occurrence: None)
  Receive Date: 20141121
  Receipt Date: 20141121
  Transmission Date: 20150529
  Serious: Yes (Hospitalization)
  Sender: FDA-Public Use
  Company Number: None

PATIENT
  Age: 40 Year
  Sex: Male
  Weight: 81.1 kg

DRUGS (1)
  1. INTRON A [Suspect]
     Active Substance: INTERFERON ALFA-2B
     Dates: end: 20121221

REACTIONS (5)
  - Scab [None]
  - Skin ulcer [None]
  - Injection site erythema [None]
  - Wound [None]
  - Necrosis [None]

NARRATIVE: CASE EVENT DATE: 20121221
